FAERS Safety Report 5037491-1 (Version None)
Quarter: 2006Q2

REPORT INFORMATION
  Report Type: 
  Country: None (occurrence: None)
  Receive Date: 20060628
  Receipt Date: 20060329
  Transmission Date: 20061013
  Serious: No
  Sender: FDA-Public Use
  Company Number: US-GLAXOSMITHKLINE-A0599556A

PATIENT
  Age: 70 Year
  Sex: Female

DRUGS (2)
  1. ALBUTEROL [Suspect]
     Indication: ASTHMA
     Dosage: 1PUFF EIGHT TIMES PER DAY
     Route: 055
     Dates: start: 20051201
  2. ACID REFLUX MED. [Concomitant]

REACTIONS (1)
  - DRUG INEFFECTIVE [None]
